FAERS Safety Report 13665025 (Version 1)
Quarter: 2017Q2

REPORT INFORMATION
  Report Type: Spontaneous
  Country: JP (occurrence: JP)
  Receive Date: 20170619
  Receipt Date: 20170619
  Transmission Date: 20170830
  Serious: Yes (Hospitalization)
  Sender: FDA-Public Use
  Company Number: JP-ABBVIE-17P-087-2010597-00

PATIENT
  Age: 76 Year
  Sex: Female

DRUGS (1)
  1. KLARICID [Suspect]
     Active Substance: CLARITHROMYCIN
     Indication: PRODUCT USED FOR UNKNOWN INDICATION
     Route: 048
     Dates: start: 201604, end: 201604

REACTIONS (1)
  - Enterocolitis haemorrhagic [Unknown]

NARRATIVE: CASE EVENT DATE: 201604
